FAERS Safety Report 5973825-9 (Version None)
Quarter: 2008Q4

REPORT INFORMATION
  Report Type: 
  Country: None (occurrence: None)
  Receive Date: 20081201
  Receipt Date: 20081119
  Transmission Date: 20090506
  Serious: Yes (Death, Hospitalization)
  Sender: FDA-Public Use
  Company Number: FR-ROCHE-598024

PATIENT
  Sex: Female

DRUGS (10)
  1. ROCEPHIN [Suspect]
     Indication: DRUG USE FOR UNKNOWN INDICATION
     Dosage: FORM: INJECTABLE SOLUTION
     Route: 042
     Dates: start: 20080711, end: 20080716
  2. ACETAMINOPHEN [Suspect]
     Indication: DRUG USE FOR UNKNOWN INDICATION
     Route: 048
     Dates: start: 20080711, end: 20080717
  3. EQUANIL [Suspect]
     Dosage: DOSAGE REGIMEN: I TAB
     Route: 048
     Dates: end: 20080716
  4. PROZAC [Concomitant]
     Dates: end: 20080711
  5. ARICEPT [Concomitant]
     Dates: end: 20080712
  6. EBIXA [Concomitant]
     Dates: end: 20080712
  7. DIFFU K [Concomitant]
     Dates: end: 20080712
  8. AMIKLIN [Concomitant]
     Dates: end: 20080713
  9. LOVENOX [Concomitant]
     Dates: end: 20080715
  10. LOVENOX [Concomitant]
     Dates: start: 20080718

REACTIONS (2)
  - DEATH [None]
  - THROMBOCYTOPENIA [None]
